FAERS Safety Report 17236518 (Version 1)
Quarter: 2020Q1

REPORT INFORMATION
  Report Type: Report from Study
  Country: GB (occurrence: GB)
  Receive Date: 20200106
  Receipt Date: 20200106
  Transmission Date: 20200409
  Serious: Yes (Other)
  Sender: FDA-Public Use
  Company Number: NVSC2019GB084328

PATIENT
  Sex: Female

DRUGS (1)
  1. HYRIMOZ [Suspect]
     Active Substance: ADALIMUMAB-ADAZ
     Indication: COLITIS ULCERATIVE
     Dosage: UNK, Q2W
     Route: 065
     Dates: start: 20190117

REACTIONS (9)
  - Chills [Unknown]
  - Abdominal pain upper [Unknown]
  - Diarrhoea [Unknown]
  - Oropharyngeal discomfort [Unknown]
  - Colitis ulcerative [Unknown]
  - Anxiety [Unknown]
  - Hyperhidrosis [Unknown]
  - Malaise [Unknown]
  - Arthralgia [Unknown]
